FAERS Safety Report 18679341 (Version 1)
Quarter: 2020Q4

REPORT INFORMATION
  Report Type: Spontaneous
  Country: US (occurrence: US)
  Receive Date: 20201230
  Receipt Date: 20201230
  Transmission Date: 20210114
  Serious: No
  Sender: FDA-Public Use
  Company Number: US-CELGENEUS-USA-20201207012

PATIENT
  Sex: Female

DRUGS (2)
  1. THALOMID [Suspect]
     Active Substance: THALIDOMIDE
     Indication: BRAIN NEOPLASM MALIGNANT
     Dosage: 50 MILLIGRAM
     Route: 048
     Dates: start: 202004
  2. THALOMID [Suspect]
     Active Substance: THALIDOMIDE
     Indication: PRODUCT USE ISSUE

REACTIONS (1)
  - Full blood count decreased [Unknown]
